FAERS Safety Report 4421047-5 (Version None)
Quarter: 2004Q3

REPORT INFORMATION
  Report Type: 
  Country: None (occurrence: None)
  Receive Date: 20040803
  Receipt Date: 20040722
  Transmission Date: 20050211
  Serious: Yes (Other)
  Sender: FDA-Public Use
  Company Number: 2004IM000772

PATIENT
  Age: 23 Year
  Sex: Male
  Weight: 78.4723 kg

DRUGS (3)
  1. INFERGEN [Suspect]
     Indication: HEPATITIS C
     Dosage: 15 UG;QD; SUBCUTANEOUS
     Route: 058
     Dates: start: 20040618, end: 20040720
  2. RIBAVIRIN [Concomitant]
  3. HIGHLY ACTIVE ANTIRETROVIRAL THERAPY (HAART) [Concomitant]

REACTIONS (2)
  - ALANINE AMINOTRANSFERASE INCREASED [None]
  - ASPARTATE AMINOTRANSFERASE INCREASED [None]
